FAERS Safety Report 11043131 (Version 1)
Quarter: 2015Q2

REPORT INFORMATION
  Report Type: Spontaneous
  Country: None (occurrence: None)
  Receive Date: 20150416
  Receipt Date: 20150416
  Transmission Date: 20150821
  Serious: Yes (Other)
  Sender: FDA-Public Use
  Company Number: None

PATIENT
  Age: 33 Year
  Sex: Female

DRUGS (3)
  1. AZELASTINE HCL [Suspect]
     Active Substance: AZELASTINE HYDROCHLORIDE
     Indication: RHINITIS ALLERGIC
     Dosage: 1 TO 2 SPRAYS; ONCE DAILY; NASAL SPRAY
     Route: 045
     Dates: start: 20150313, end: 20150325
  2. DAILY VITAMIN [Concomitant]
     Active Substance: VITAMINS
  3. ASTEPRO [Concomitant]
     Active Substance: AZELASTINE HYDROCHLORIDE

REACTIONS (5)
  - Headache [None]
  - Irritability [None]
  - Flushing [None]
  - Dyspnoea [None]
  - Fatigue [None]

NARRATIVE: CASE EVENT DATE: 20150325
